FAERS Safety Report 25447598 (Version 1)
Quarter: 2025Q2

REPORT INFORMATION
  Report Type: Report from Study
  Country: CA (occurrence: CA)
  Receive Date: 20250617
  Receipt Date: 20250617
  Transmission Date: 20250716
  Serious: Yes (Other)
  Sender: JOHNSON AND JOHNSON
  Company Number: CA-JNJFOC-20250619160

PATIENT
  Age: 17 Year
  Sex: Male

DRUGS (1)
  1. REMICADE [Suspect]
     Active Substance: INFLIXIMAB
     Indication: Crohn^s disease
     Dosage: EXPIRY DATE REPORTED AS  MA-27
     Route: 041
     Dates: start: 20240508

REACTIONS (4)
  - Fall [Recovering/Resolving]
  - Limb injury [Recovering/Resolving]
  - Limb injury [Recovering/Resolving]
  - Back injury [Recovering/Resolving]

NARRATIVE: CASE EVENT DATE: 20250602
